FAERS Safety Report 9585747 (Version 1)
Quarter: 2013Q3

REPORT INFORMATION
  Report Type: Spontaneous
  Country: US (occurrence: None)
  Receive Date: 20130926
  Receipt Date: 20130926
  Transmission Date: 20140515
  Serious: Yes (Other)
  Sender: FDA-Public Use
  Company Number: AUR-APL-2013-01985

PATIENT
  Age: 92 Year
  Sex: Female
  Weight: 61.24 kg

DRUGS (3)
  1. ALENDRONIC ACID (ALENDRONIC ACID) [Suspect]
     Indication: OSTEOPOROSIS
     Route: 048
  2. RAMIPRIL [Concomitant]
  3. METOPROLOL [Concomitant]

REACTIONS (1)
  - Femur fracture [None]
